FAERS Safety Report 10353681 (Version 1)
Quarter: 2014Q3

REPORT INFORMATION
  Report Type: Spontaneous
  Country: IL (occurrence: IL)
  Receive Date: 20140731
  Receipt Date: 20140731
  Transmission Date: 20150326
  Serious: Yes (Death)
  Sender: FDA-Public Use
  Company Number: IL-IPSEN BIOPHARMACEUTICALS, INC.-2014-4089

PATIENT
  Age: 46 Year
  Sex: Female

DRUGS (1)
  1. SOMATULINE AUTOGEL [Suspect]
     Active Substance: LANREOTIDE ACETATE
     Indication: HEPATIC CANCER
     Dosage: 90 MG
     Route: 058
     Dates: start: 20140611, end: 20140611

REACTIONS (2)
  - Disease progression [Fatal]
  - Hepatic cancer [None]
